FAERS Safety Report 5313830-9 (Version None)
Quarter: 2007Q2

REPORT INFORMATION
  Report Type: 
  Country: None (occurrence: None)
  Receive Date: 20070501
  Receipt Date: 20070426
  Transmission Date: 20071010
  Serious: Yes (Hospitalization)
  Sender: FDA-Public Use
  Company Number: BR-GLAXOSMITHKLINE-A0648936A

PATIENT
  Age: 10 Month
  Sex: Male
  Weight: 9 kg

DRUGS (2)
  1. CLAVULIN [Suspect]
     Indication: TONSILLITIS
     Route: 048
     Dates: start: 20070330, end: 20070413
  2. SERETIDE [Concomitant]
     Dates: start: 20070301

REACTIONS (5)
  - DERMATITIS [None]
  - DRUG ADMINISTRATION ERROR [None]
  - DRUG INEFFECTIVE [None]
  - EXPIRED DRUG ADMINISTERED [None]
  - FEBRILE CONVULSION [None]
